FAERS Safety Report 9928829 (Version 1)
Quarter: 2014Q1

REPORT INFORMATION
  Report Type: Spontaneous
  Country: IN (occurrence: None)
  Receive Date: 20140225
  Receipt Date: 20140225
  Transmission Date: 20141002
  Serious: Yes (Other)
  Sender: FDA-Public Use
  Company Number: 2014P1001306

PATIENT
  Age: 46 Year
  Sex: Male

DRUGS (3)
  1. FLUOXETINE [Suspect]
  2. TRAMADOL/ACETAMINOPHEN [Suspect]
  3. ONDANSETRON [Suspect]
     Indication: NAUSEA

REACTIONS (1)
  - Serotonin syndrome [None]
